FAERS Safety Report 7063326-1 (Version None)
Quarter: 2010Q4

REPORT INFORMATION
  Report Type: 
  Country: None (occurrence: None)
  Receive Date: 20101026
  Receipt Date: 20091105
  Transmission Date: 20110411
  Serious: No
  Sender: FDA-Public Use
  Company Number: US-ABBOTT-09P-163-0607742-00

PATIENT
  Sex: Male
  Weight: 79.45 kg

DRUGS (5)
  1. LUPRON DEPOT [Suspect]
     Indication: PROSTATE CANCER
  2. LUPRON DEPOT [Suspect]
     Dates: end: 20070101
  3. CASADEX [Concomitant]
     Indication: PRODUCT USED FOR UNKNOWN INDICATION
  4. INSULIN [Concomitant]
     Indication: DIABETES MELLITUS
  5. UNKNOWN OTHER MEDICATIONS [Concomitant]
     Indication: PRODUCT USED FOR UNKNOWN INDICATION

REACTIONS (5)
  - ASTHENIA [None]
  - FATIGUE [None]
  - POLLAKIURIA [None]
  - POOR QUALITY SLEEP [None]
  - PROSTATIC SPECIFIC ANTIGEN ABNORMAL [None]
